FAERS Safety Report 7690396-X (Version None)
Quarter: 2011Q3

REPORT INFORMATION
  Report Type: 
  Country: None (occurrence: None)
  Receive Date: 20110818
  Receipt Date: 20110812
  Transmission Date: 20111222
  Serious: Yes (Other)
  Sender: FDA-Public Use
  Company Number: PHHY2010DK56240

PATIENT
  Sex: Female
  Weight: 70 kg

DRUGS (5)
  1. ATENOLOL [Concomitant]
     Indication: CARDIAC DISORDER
     Dosage: 25 MG, UNK
     Route: 048
     Dates: start: 20090616, end: 20091001
  2. RITALIN [Suspect]
     Dosage: UNK
  3. NORESTISTERONE [Concomitant]
     Indication: ORAL CONTRACEPTION
     Dosage: 0.35 MG, UNK
  4. CITALOPRAM HYDROBROMIDE [Concomitant]
  5. VENTOLIN [Concomitant]
     Indication: ASTHMA
     Dosage: UNK
     Dates: start: 19990101

REACTIONS (2)
  - MATERNAL EXPOSURE DURING PREGNANCY [None]
  - PRE-ECLAMPSIA [None]
